FAERS Safety Report 25239261 (Version 1)
Quarter: 2025Q2

REPORT INFORMATION
  Report Type: Spontaneous
  Country: US (occurrence: None)
  Receive Date: 20250424
  Receipt Date: 20250424
  Transmission Date: 20250717
  Serious: Yes (Hospitalization)
  Sender: FDA-CTU
  Company Number: None

PATIENT
  Age: 80 Year
  Sex: Male
  Weight: 124 kg

DRUGS (1)
  1. EMPAGLIFLOZIN [Suspect]
     Active Substance: EMPAGLIFLOZIN
     Indication: Cardiac failure congestive
     Route: 048
     Dates: start: 20240612, end: 20250407

REACTIONS (4)
  - Fall [None]
  - Urinary tract infection [None]
  - Diabetic ketoacidosis [None]
  - Therapy cessation [None]

NARRATIVE: CASE EVENT DATE: 20250411
